FAERS Safety Report 12561533 (Version 1)
Quarter: 2016Q3

REPORT INFORMATION
  Report Type: Spontaneous
  Country: NL (occurrence: NL)
  Receive Date: 20160715
  Receipt Date: 20160715
  Transmission Date: 20161109
  Serious: Yes (Other)
  Sender: FDA-Public Use
  Company Number: NL-TEVA-675991ACC

PATIENT
  Age: 48 Year
  Sex: Male
  Weight: 80 kg

DRUGS (1)
  1. AMOXICILLINE CAPSULE 500MG [Suspect]
     Active Substance: AMOXICILLIN
     Indication: DENTAL CARE
     Dosage: 1500 MILLIGRAM DAILY; 3 TIMES PER DAY 1 PIECE(S)
     Route: 048
     Dates: start: 20160627, end: 20160630

REACTIONS (1)
  - Epididymitis [Recovering/Resolving]

NARRATIVE: CASE EVENT DATE: 20160628
